FAERS Safety Report 9190078 (Version 1)
Quarter: 2013Q1

REPORT INFORMATION
  Report Type: Spontaneous
  Country: US (occurrence: US)
  Receive Date: 20130326
  Receipt Date: 20130326
  Transmission Date: 20140127
  Serious: No
  Sender: FDA-Public Use
  Company Number: US-PFIZER INC-2013093971

PATIENT
  Age: 49 Year
  Sex: Female
  Weight: 49.9 kg

DRUGS (1)
  1. LEVOXYL [Suspect]
     Indication: HYPOTHYROIDISM
     Dosage: 0.5 MG, 1X/DAY

REACTIONS (3)
  - Product quality issue [Unknown]
  - Dysgeusia [Not Recovered/Not Resolved]
  - Throat irritation [Not Recovered/Not Resolved]
